FAERS Safety Report 9223028 (Version 1)
Quarter: 2013Q2

REPORT INFORMATION
  Report Type: Spontaneous
  Country: US (occurrence: US)
  Receive Date: 20130410
  Receipt Date: 20130410
  Transmission Date: 20140414
  Serious: Yes (Other)
  Sender: FDA-Public Use
  Company Number: US-ROCHE-1211778

PATIENT
  Sex: Female

DRUGS (7)
  1. XOLAIR [Suspect]
     Indication: PRODUCT USED FOR UNKNOWN INDICATION
     Route: 065
     Dates: start: 201210
  2. XOLAIR [Suspect]
     Route: 065
     Dates: start: 201211
  3. COUMADIN [Concomitant]
     Route: 065
  4. PRILOSEC [Concomitant]
  5. FLONASE [Concomitant]
  6. PROGESTERONE [Concomitant]
  7. CARDIZEM [Concomitant]
     Route: 065

REACTIONS (1)
  - Pulmonary embolism [Unknown]
